FAERS Safety Report 14909957 (Version 1)
Quarter: 2018Q2

REPORT INFORMATION
  Report Type: Spontaneous
  Country: US (occurrence: US)
  Receive Date: 20180517
  Receipt Date: 20180517
  Transmission Date: 20180711
  Serious: No
  Sender: FDA-Public Use
  Company Number: US-TARO-2017TAR00815

PATIENT
  Age: 61 Year
  Sex: Female

DRUGS (1)
  1. TERCONAZOLE VAGINAL CREAM 0.8% [Suspect]
     Active Substance: TERCONAZOLE
     Route: 067

REACTIONS (4)
  - Application site discomfort [Unknown]
  - Incorrect dose administered [Unknown]
  - Application site pain [Unknown]
  - Product quality issue [Unknown]
